FAERS Safety Report 23523189 (Version 1)
Quarter: 2024Q1

REPORT INFORMATION
  Report Type: Spontaneous
  Country: ES (occurrence: None)
  Receive Date: 20240214
  Receipt Date: 20240214
  Transmission Date: 20240409
  Serious: Yes (Other)
  Sender: FDA-Public Use
  Company Number: 2024A036159

PATIENT
  Age: 4 Month
  Sex: Female
  Weight: 8.4 kg

DRUGS (1)
  1. BEYFORTUS [Suspect]
     Active Substance: NIRSEVIMAB-ALIP
     Indication: Respiratory syncytial virus immunisation
     Dosage: UNK
     Dates: start: 20231102, end: 20231102

REACTIONS (4)
  - Respiratory syncytial virus bronchitis [Recovering/Resolving]
  - Nasopharyngitis [Recovering/Resolving]
  - Laryngitis [Recovering/Resolving]
  - Drug ineffective [Unknown]

NARRATIVE: CASE EVENT DATE: 20231218
